FAERS Safety Report 9196298 (Version 1)
Quarter: 2013Q1

REPORT INFORMATION
  Report Type: Spontaneous
  Country: US (occurrence: None)
  Receive Date: 20120703
  Receipt Date: 20120703
  Transmission Date: 20140127
  Serious: No
  Sender: FDA-Public Use
  Company Number: PHEH2012US009046

PATIENT
  Sex: Male

DRUGS (3)
  1. GILENYA [Suspect]
     Dosage: ONE CAPSULE DAILY
     Route: 048
  2. LIPITOR (ATORVASTATIN CALCIUM) TABLET, 10 MG [Concomitant]
  3. ASPIRIN (ACETYLSALICYLIC ACID), 81 MG [Concomitant]

REACTIONS (1)
  - Somnolence [None]
